FAERS Safety Report 6524099-1 (Version None)
Quarter: 2009Q4

REPORT INFORMATION
  Report Type: 
  Country: None (occurrence: None)
  Receive Date: 20091230
  Receipt Date: 20091230
  Transmission Date: 20100525
  Serious: Yes (Disabling, Other)
  Sender: FDA-Public Use
  Company Number: None

PATIENT

DRUGS (2)
  1. ABILIFY [Suspect]
     Indication: DEPRESSION
     Dosage: 5MG ONCE A DAY
     Dates: start: 20080701, end: 20081101
  2. ABILIFY [Suspect]
     Indication: DEPRESSION
     Dosage: 5MG ONCE A DAY
     Dates: start: 20090101, end: 20090601

REACTIONS (2)
  - DRUG INEFFECTIVE [None]
  - DRY MOUTH [None]
